FAERS Safety Report 4926627-6 (Version None)
Quarter: 2006Q1

REPORT INFORMATION
  Report Type: 
  Country: None (occurrence: None)
  Receive Date: 20060228
  Receipt Date: 20050512
  Transmission Date: 20060701
  Serious: No
  Sender: FDA-Public Use
  Company Number: US-GLAXOSMITHKLINE-A0558370A

PATIENT
  Age: 36 Year
  Sex: Female

DRUGS (6)
  1. LAMICTAL [Suspect]
     Indication: BIPOLAR DISORDER
     Dosage: 200MG PER DAY
     Route: 048
     Dates: start: 20041201, end: 20050512
  2. PROZAC [Concomitant]
  3. AMBIEN [Concomitant]
  4. CELEBREX [Concomitant]
  5. PROTONIX [Concomitant]
  6. DYAZIDE [Concomitant]

REACTIONS (5)
  - DIZZINESS [None]
  - MOUTH ULCERATION [None]
  - NAUSEA [None]
  - PYREXIA [None]
  - VOMITING [None]
